FAERS Safety Report 23995751 (Version 1)
Quarter: 2024Q2

REPORT INFORMATION
  Report Type: Spontaneous
  Country: CN (occurrence: CN)
  Receive Date: 20240620
  Receipt Date: 20240620
  Transmission Date: 20240716
  Serious: Yes (Disabling, Other)
  Sender: FDA-Public Use
  Company Number: CN-AMGEN-CHNSP2024118642

PATIENT
  Age: 59 Year
  Sex: Male
  Weight: 80 kg

DRUGS (4)
  1. KYPROLIS [Suspect]
     Active Substance: CARFILZOMIB
     Indication: Plasma cell myeloma
     Dosage: 39.2 MILLIGRAM, D1,2,
     Route: 042
     Dates: start: 20240531, end: 2024
  2. KYPROLIS [Suspect]
     Active Substance: CARFILZOMIB
     Dosage: 52.9 MILLIGRAM, D8-9, 15-16
     Route: 042
     Dates: start: 2024, end: 20240613
  3. POMALIDOMIDE [Suspect]
     Active Substance: POMALIDOMIDE
     Indication: Plasma cell myeloma
     Dosage: 4 MILLIGRAM, D1-21
     Route: 042
     Dates: start: 20240531, end: 20240613
  4. CYCLOPHOSPHAMIDE [Suspect]
     Active Substance: CYCLOPHOSPHAMIDE
     Indication: Plasma cell myeloma
     Dosage: 0.58 GRAM, D1-2, 8-9, 15-16
     Route: 042
     Dates: start: 20240531, end: 20240613

REACTIONS (1)
  - Myelosuppression [Recovered/Resolved]

NARRATIVE: CASE EVENT DATE: 20240601
